FAERS Safety Report 6032263-3 (Version None)
Quarter: 2009Q1

REPORT INFORMATION
  Report Type: 
  Country: None (occurrence: None)
  Receive Date: 20090108
  Receipt Date: 20081224
  Transmission Date: 20090719
  Serious: Yes (Other)
  Sender: FDA-Public Use
  Company Number: JP-PFIZER INC-2009151116

PATIENT
  Age: 77 Year
  Sex: Male

DRUGS (2)
  1. CORTRIL [Suspect]
     Indication: AUTOIMMUNE THYROIDITIS
     Dosage: UNK
     Route: 048
     Dates: start: 20080101
  2. CORTRIL [Suspect]
     Indication: TYPE 2 DIABETES MELLITUS

REACTIONS (1)
  - DIABETES INSIPIDUS [None]
